FAERS Safety Report 7806495 (Version 8)
Quarter: 2014Q1

REPORT INFORMATION
  Report Type: Spontaneous
  Country: US (occurrence: US)
  Receive Date: 20110209
  Receipt Date: 20140305
  Transmission Date: 20141002
  Serious: Yes (Other)
  Sender: FDA-Public Use
  Company Number: US-ASTRAZENECA-2011SE05272

PATIENT
  Age: 56 Year
  Sex: Male
  Weight: 75.8 kg

DRUGS (14)
  1. NEXIUM [Suspect]
     Indication: GASTROOESOPHAGEAL REFLUX DISEASE
     Route: 048
  2. NEXIUM [Suspect]
     Indication: GASTROOESOPHAGEAL REFLUX DISEASE
     Route: 048
     Dates: start: 2009
  3. CRESTOR [Suspect]
     Indication: BLOOD CHOLESTEROL ABNORMAL
     Route: 048
     Dates: start: 2010
  4. PANTAPRAZOLE SOD DR [Concomitant]
     Indication: GASTROOESOPHAGEAL REFLUX DISEASE
     Dates: start: 2013
  5. GABAPENTIN [Concomitant]
     Indication: NEURALGIA
     Dates: start: 2012
  6. LOSARTAN-HCTZ [Concomitant]
     Indication: BLOOD PRESSURE ABNORMAL
     Dosage: 100-12.5 MG DAILY
     Dates: start: 2005
  7. TIVANIDINE HCL [Concomitant]
     Indication: MUSCLE RELAXANT THERAPY
     Dosage: 4 MG, 3 TO 4 TIMES
  8. HYDROCODONE [Concomitant]
     Indication: BACK PAIN
     Dosage: 10-325 MG TID
     Dates: start: 2000
  9. DULERA [Concomitant]
     Indication: BRONCHITIS CHRONIC
     Dosage: 4-5 MCG 2 PUFFS BID
     Route: 055
     Dates: start: 2013
  10. POTASSIUM KLER [Concomitant]
     Indication: HYPOKALAEMIA
     Dates: start: 2003
  11. NORTARIPTLINE HCL [Concomitant]
  12. CLONAZEPANE [Concomitant]
     Indication: ANXIETY
  13. CLONAZEPANE [Concomitant]
     Indication: PANIC ATTACK
  14. AMLODIPINE BESYLATE [Concomitant]
     Indication: BLOOD PRESSURE ABNORMAL
     Dates: start: 201402

REACTIONS (14)
  - Polyp [Unknown]
  - Precancerous cells present [Unknown]
  - Pharyngeal disorder [Unknown]
  - Back disorder [Unknown]
  - Dyspnoea [Unknown]
  - Gastric disorder [Unknown]
  - Dysstasia [Unknown]
  - Posture abnormal [Unknown]
  - Memory impairment [Unknown]
  - Hearing impaired [Unknown]
  - Bronchitis [Unknown]
  - Respiratory disorder [Unknown]
  - Dysphonia [Unknown]
  - Diarrhoea [Unknown]
